FAERS Safety Report 5838335-8 (Version None)
Quarter: 2008Q3

REPORT INFORMATION
  Report Type: 
  Country: None (occurrence: None)
  Receive Date: 20080808
  Receipt Date: 20080731
  Transmission Date: 20090109
  Serious: Yes (Death, Other)
  Sender: FDA-Public Use
  Company Number: US-AMGEN-STX293400

PATIENT
  Sex: Female
  Weight: 81.7 kg

DRUGS (5)
  1. ENBREL [Suspect]
     Indication: RHEUMATOID ARTHRITIS
     Route: 058
     Dates: end: 20080519
  2. METHOTREXATE [Concomitant]
     Route: 065
  3. HYDROCODONE BITARTRATE [Concomitant]
     Route: 065
  4. AMBIEN [Concomitant]
     Route: 065
  5. LEXAPRO [Concomitant]
     Route: 065

REACTIONS (5)
  - ASPHYXIA [None]
  - BRONCHITIS CHRONIC [None]
  - CONVULSION [None]
  - PNEUMONIA ASPIRATION [None]
  - VENTRICULAR HYPERTROPHY [None]
